FAERS Safety Report 5835567-X (Version None)
Quarter: 2008Q3

REPORT INFORMATION
  Report Type: 
  Country: None (occurrence: None)
  Receive Date: 20080806
  Receipt Date: 20080731
  Transmission Date: 20090109
  Serious: Yes (Death)
  Sender: FDA-Public Use
  Company Number: B0531409A

PATIENT
  Age: 62 Year
  Sex: Female
  Weight: 70 kg

DRUGS (6)
  1. FLOLAN [Suspect]
     Indication: PULMONARY ARTERIAL HYPERTENSION
     Route: 042
     Dates: start: 20080711, end: 20080714
  2. TRACLEER [Suspect]
     Dosage: 125MG TWICE PER DAY
     Route: 048
  3. REVATIO [Suspect]
     Dosage: 60MG PER DAY
     Route: 048
  4. FUROSEMIDE [Suspect]
     Dosage: 140MG PER DAY
     Route: 048
  5. ALDACTONE [Suspect]
     Dosage: 50MG PER DAY
     Route: 065
  6. AMLOR [Concomitant]
     Route: 065
     Dates: end: 20080711

REACTIONS (10)
  - CARDIAC FAILURE [None]
  - DISEASE PROGRESSION [None]
  - HEADACHE [None]
  - HYPOTENSION [None]
  - INJURY [None]
  - NAUSEA [None]
  - PNEUMOTHORAX [None]
  - SUDDEN DEATH [None]
  - VASODILATATION [None]
  - VOMITING [None]
